FAERS Safety Report 10507175 (Version 1)
Quarter: 2014Q3

REPORT INFORMATION
  Report Type: Spontaneous
  Country: US (occurrence: None)
  Receive Date: 20140915
  Receipt Date: 20140915
  Transmission Date: 20150326
  Serious: Yes (Other)
  Sender: FDA-Public Use
  Company Number: 2014-US-006704

PATIENT
  Age: 59 Year
  Sex: Female
  Weight: 81.6 kg

DRUGS (1)
  1. XYREM [Suspect]
     Active Substance: SODIUM OXYBATE
     Indication: NARCOLEPSY
     Route: 048
     Dates: start: 200701, end: 200701

REACTIONS (3)
  - Hypertension [None]
  - Blood triglycerides increased [None]
  - Toothache [None]

NARRATIVE: CASE EVENT DATE: 20140521
